FAERS Safety Report 10308174 (Version 1)
Quarter: 2014Q3

REPORT INFORMATION
  Report Type: Spontaneous
  Country: GB (occurrence: None)
  Receive Date: 20140711
  Receipt Date: 20140711
  Transmission Date: 20150326
  Serious: Yes (Disabling)
  Sender: FDA-Public Use
  Company Number: AUR-APL-2014-07281

PATIENT
  Age: 60 Year
  Sex: Female
  Weight: 76 kg

DRUGS (10)
  1. SALBUTAMOL (SALBUTAMOL) [Concomitant]
     Active Substance: ALBUTEROL
  2. ATENOLOL (ATENOLOL) [Concomitant]
     Active Substance: ATENOLOL
  3. SIMETICONE (SIMETICONE) [Concomitant]
  4. LEVOTHYROXINE (LEVOTHYROXINE) [Concomitant]
     Active Substance: LEVOTHYROXINE
  5. LACTULOSE (LACTULOSE) [Concomitant]
     Active Substance: LACTULOSE
  6. PARACETAMOL (PARACETAMOL) [Concomitant]
     Active Substance: ACETAMINOPHEN
  7. SIMVASTATIN (SIMVASTATIN) [Suspect]
     Active Substance: SIMVASTATIN
     Indication: PRODUCT USED FOR UNKNOWN INDICATION
     Dates: start: 20140304
  8. IBUPROFEN (IBUPROFEN) [Concomitant]
     Active Substance: IBUPROFEN
  9. OMEPRAZOLE (OMEPRAZOLE) [Concomitant]
     Active Substance: OMEPRAZOLE
  10. GABAPENTIN (GABAPENTIN) [Concomitant]
     Active Substance: GABAPENTIN

REACTIONS (3)
  - Abasia [None]
  - Myalgia [None]
  - Muscular weakness [None]

NARRATIVE: CASE EVENT DATE: 20140624
